FAERS Safety Report 25978110 (Version 4)
Quarter: 2025Q4

REPORT INFORMATION
  Report Type: Report from Study
  Country: US (occurrence: US)
  Receive Date: 20251030
  Receipt Date: 20251231
  Transmission Date: 20260118
  Serious: Yes (Other)
  Sender: NOVARTIS
  Company Number: US-002147023-NVSC2025US166711

PATIENT
  Age: 48 Year
  Sex: Male

DRUGS (1)
  1. KESIMPTA [Suspect]
     Active Substance: OFATUMUMAB
     Indication: Multiple sclerosis
     Dosage: UNK
     Route: 065
     Dates: start: 20251013

REACTIONS (4)
  - Paralysis [Recovered/Resolved]
  - Chills [Unknown]
  - Malaise [Recovered/Resolved]
  - Device malfunction [Recovering/Resolving]

NARRATIVE: CASE EVENT DATE: 20251013
